FAERS Safety Report 24150590 (Version 2)
Quarter: 2024Q3

REPORT INFORMATION
  Report Type: Spontaneous
  Country: US (occurrence: US)
  Receive Date: 20240730
  Receipt Date: 20240902
  Transmission Date: 20241017
  Serious: No
  Sender: BLUEPRINT MEDICINES
  Company Number: US-Blueprint Medicines Corporation-4309

PATIENT
  Sex: Male

DRUGS (1)
  1. AYVAKIT [Suspect]
     Active Substance: AVAPRITINIB
     Indication: Systemic mastocytosis
     Route: 065
     Dates: start: 20240514

REACTIONS (8)
  - Apathy [Unknown]
  - Depression [Unknown]
  - Frequent bowel movements [Unknown]
  - Unevaluable event [Unknown]
  - Fatigue [Unknown]
  - Asthenia [Unknown]
  - Symptom recurrence [Unknown]
  - Drug ineffective [Unknown]
